FAERS Safety Report 9348258 (Version 1)
Quarter: 2013Q2

REPORT INFORMATION
  Report Type: Spontaneous
  Country: US (occurrence: None)
  Receive Date: 20130612
  Receipt Date: 20130612
  Transmission Date: 20140414
  Serious: No
  Sender: FDA-Public Use
  Company Number: None

PATIENT
  Age: 49 Year
  Sex: Female

DRUGS (6)
  1. LATANOPROST [Suspect]
     Indication: GLAUCOMA
     Dosage: 1 GTT OD  QHS  EYEDROP
     Dates: start: 20120412, end: 20130108
  2. INSULIN [Concomitant]
  3. HCTZ [Concomitant]
  4. LISINOPRIL [Concomitant]
  5. LIPITOR [Concomitant]
  6. VITAMIN D [Concomitant]

REACTIONS (2)
  - Intraocular pressure test abnormal [None]
  - Product substitution issue [None]
